FAERS Safety Report 5140772-4 (Version None)
Quarter: 2006Q4

REPORT INFORMATION
  Report Type: 
  Country: None (occurrence: None)
  Receive Date: 20061024
  Receipt Date: 20061009
  Transmission Date: 20070319
  Serious: Yes (Death, Hospitalization)
  Sender: FDA-Public Use
  Company Number: TR200608001458

PATIENT
  Age: 59 Year
  Sex: Male
  Weight: 90 kg

DRUGS (8)
  1. ZYPREXA [Suspect]
     Indication: SCHIZOAFFECTIVE DISORDER
     Dosage: SEE IMAGE
     Route: 048
     Dates: start: 20060723, end: 20060804
  2. ZYPREXA [Suspect]
     Indication: SCHIZOAFFECTIVE DISORDER
     Dosage: SEE IMAGE
     Route: 048
     Dates: start: 20040701
  3. IXEL (MILNACIPRAN) [Concomitant]
  4. DEPAKIN (VALPROATE SODIUM) [Concomitant]
  5. FORADIL [Concomitant]
  6. SYMBICORT /CAN/ (BUDESONIDE, FORMOTEROL FUMARATE) [Concomitant]
  7. THEOPHYLLINE [Concomitant]
  8. CORASPIN (ACETYLSALICYLIC ACID) [Concomitant]

REACTIONS (7)
  - ABNORMAL BEHAVIOUR [None]
  - ACCIDENTAL OVERDOSE [None]
  - CHRONIC OBSTRUCTIVE PULMONARY DISEASE [None]
  - DISORIENTATION [None]
  - DRUG PRESCRIBING ERROR [None]
  - INCOHERENT [None]
  - OEDEMA PERIPHERAL [None]
